FAERS Safety Report 9571332 (Version 1)
Quarter: 2013Q3

REPORT INFORMATION
  Report Type: Spontaneous
  Country: US (occurrence: None)
  Receive Date: 20130927
  Receipt Date: 20130927
  Transmission Date: 20140515
  Serious: No
  Sender: FDA-Public Use
  Company Number: None

PATIENT
  Age: 14 Month
  Sex: Male
  Weight: 9.6 kg

DRUGS (4)
  1. MONTE-AIR [Suspect]
     Indication: RHINITIS
     Dosage: 1 SACHET A DAY, ONCE DAILY, TAKEN BY MOUTH
     Dates: start: 20130430, end: 20130926
  2. MONTE-AIR [Suspect]
     Indication: ASTHMA
     Dosage: 1 SACHET A DAY, ONCE DAILY, TAKEN BY MOUTH
     Dates: start: 20130430, end: 20130926
  3. SINGULAIR [Suspect]
     Indication: RHINITIS
     Dosage: 1 SACHET, ONCE DAILY, TAKEN BY MOUTH
     Dates: start: 20130101, end: 20130430
  4. SINGULAIR [Suspect]
     Indication: ASTHMA
     Dosage: 1 SACHET, ONCE DAILY, TAKEN BY MOUTH
     Dates: start: 20130101, end: 20130430

REACTIONS (5)
  - Aggression [None]
  - Frustration [None]
  - Sleep terror [None]
  - Crying [None]
  - Abnormal behaviour [None]
